FAERS Safety Report 7008211-6 (Version None)
Quarter: 2010Q3

REPORT INFORMATION
  Report Type: 
  Country: None (occurrence: None)
  Receive Date: 20100922
  Receipt Date: 20100913
  Transmission Date: 20110219
  Serious: Yes (Hospitalization)
  Sender: FDA-Public Use
  Company Number: DE-ABBOTT-10P-062-0664262-00

PATIENT
  Sex: Male

DRUGS (3)
  1. HUMIRA [Suspect]
     Indication: RHEUMATOID ARTHRITIS
     Dates: start: 20080411
  2. MTX [Concomitant]
     Indication: PRODUCT USED FOR UNKNOWN INDICATION
  3. CORTISON [Concomitant]
     Indication: PRODUCT USED FOR UNKNOWN INDICATION

REACTIONS (6)
  - DIARRHOEA [None]
  - DISORIENTATION [None]
  - DIZZINESS [None]
  - GASTROINTESTINAL INFECTION [None]
  - MOBILITY DECREASED [None]
  - PNEUMONIA [None]
